FAERS Safety Report 7755268-0 (Version None)
Quarter: 2011Q3

REPORT INFORMATION
  Report Type: 
  Country: None (occurrence: None)
  Receive Date: 20110916
  Receipt Date: 20110912
  Transmission Date: 20111222
  Serious: Yes (Other)
  Sender: FDA-Public Use
  Company Number: FR-PFIZER INC-2011213640

PATIENT
  Age: 76 Year
  Sex: Female

DRUGS (7)
  1. LYRICA [Suspect]
     Dosage: 50 MG, 2X/DAY
  2. PANTOPRAZOLE SODIUM [Concomitant]
     Dosage: UNK
  3. LYRICA [Suspect]
     Indication: SCIATICA
     Dosage: 75 MG, 2X/DAY
     Dates: start: 20090101
  4. GLUCOPHAGE [Concomitant]
     Indication: TYPE 2 DIABETES MELLITUS
     Dosage: UNK
  5. CLONAZEPAM [Concomitant]
     Dosage: 3 GTT, 1X/DAY
  6. PRAVASTATIN [Concomitant]
     Indication: HYPERCHOLESTEROLAEMIA
     Dosage: UNK
  7. ASPEGIC 325 [Concomitant]
     Dosage: UNK

REACTIONS (1)
  - AGE-RELATED MACULAR DEGENERATION [None]
